FAERS Safety Report 13261894 (Version 3)
Quarter: 2017Q3

REPORT INFORMATION
  Report Type: Spontaneous
  Country: CN (occurrence: CN)
  Receive Date: 20170222
  Receipt Date: 20170927
  Transmission Date: 20171127
  Serious: Yes (Hospitalization)
  Sender: FDA-Public Use
  Company Number: CN-JNJFOC-20170215358

PATIENT
  Age: 5 Year
  Sex: Female
  Weight: 20 kg

DRUGS (1)
  1. VERMOX [Suspect]
     Active Substance: MEBENDAZOLE
     Indication: ASCARIASIS
     Route: 048
     Dates: start: 20170211, end: 20170213

REACTIONS (2)
  - Abdominal pain [Recovering/Resolving]
  - Henoch-Schonlein purpura nephritis [Recovering/Resolving]

NARRATIVE: CASE EVENT DATE: 201702
